FAERS Safety Report 7532765-4 (Version None)
Quarter: 2011Q2

REPORT INFORMATION
  Report Type: 
  Country: None (occurrence: None)
  Receive Date: 20110608
  Receipt Date: 20110530
  Transmission Date: 20111010
  Serious: Yes (Death, Life-Threatening)
  Sender: FDA-Public Use
  Company Number: B0669032A

PATIENT
  Sex: Female

DRUGS (10)
  1. PASIL [Concomitant]
     Dosage: 2IUAX PER DAY
     Route: 042
     Dates: start: 20091107, end: 20091210
  2. VFEND [Concomitant]
     Dosage: 600MG PER DAY
     Route: 042
     Dates: start: 20091121, end: 20091124
  3. DIFLUCAN [Concomitant]
     Dosage: 100MG PER DAY
     Route: 048
     Dates: start: 20091120, end: 20091129
  4. GANCICLOVIR [Concomitant]
     Dosage: 600MG PER DAY
     Route: 042
     Dates: start: 20091111, end: 20091204
  5. HANP [Concomitant]
     Dosage: 3000MCG PER DAY
     Route: 042
     Dates: start: 20091122, end: 20091208
  6. LEVOFLOXACIN [Concomitant]
     Dosage: 400MG PER DAY
     Route: 048
     Dates: start: 20091120, end: 20091129
  7. ZYVOX [Concomitant]
     Dosage: 1200MG PER DAY
     Route: 042
     Dates: start: 20091121, end: 20091130
  8. ZOVIRAX [Concomitant]
     Dosage: 200MG PER DAY
     Route: 048
     Dates: start: 20091120, end: 20091129
  9. ALKERAN [Suspect]
     Indication: STEM CELL TRANSPLANT
     Dosage: 60MGM2 PER DAY
     Dates: start: 20091121, end: 20091122
  10. MAXIPIME [Concomitant]
     Dosage: 4G PER DAY
     Route: 042
     Dates: start: 20091121, end: 20091129

REACTIONS (7)
  - SEPTIC SHOCK [None]
  - PNEUMOTHORAX [None]
  - PNEUMOMEDIASTINUM [None]
  - DISSEMINATED INTRAVASCULAR COAGULATION [None]
  - CARDIAC FAILURE [None]
  - STAPHYLOCOCCAL INFECTION [None]
  - ACUTE RESPIRATORY DISTRESS SYNDROME [None]
